FAERS Safety Report 8878937 (Version 2)
Quarter: 2012Q4

REPORT INFORMATION
  Report Type: Report from Study
  Country: EE (occurrence: EE)
  Receive Date: 20121026
  Receipt Date: 20121101
  Transmission Date: 20130627
  Serious: Yes (Death, Other)
  Sender: FDA-Public Use
  Company Number: EE-ROCHE-1104878

PATIENT
  Age: 80 Year
  Sex: Male

DRUGS (13)
  1. MYCOPHENOLATE MOFETIL [Suspect]
     Indication: RENAL TRANSPLANT
     Route: 065
     Dates: start: 20060728
  2. BELATACEPT [Suspect]
     Indication: RENAL TRANSPLANT
     Route: 065
     Dates: start: 20060728, end: 20110726
  3. BASILIXIMAB [Suspect]
     Indication: RENAL TRANSPLANT
     Route: 065
     Dates: start: 20060728, end: 20060801
  4. FUROSEMIDE [Concomitant]
     Route: 065
     Dates: start: 20070627
  5. LOSARTAN [Concomitant]
     Route: 065
     Dates: start: 20060818
  6. DOXAZOSIN [Concomitant]
     Route: 065
     Dates: start: 20100921
  7. AMLODIPINE [Concomitant]
     Route: 065
     Dates: start: 20070925
  8. DARBEPOETIN ALFA [Concomitant]
     Route: 065
     Dates: start: 20100923
  9. ATORVASTATIN [Concomitant]
     Route: 065
     Dates: start: 20100830
  10. CALCIUM CARBONATE [Concomitant]
     Route: 065
     Dates: start: 20060731
  11. CALCITRIOL [Concomitant]
     Route: 065
     Dates: start: 20060804
  12. VITAMIN B1 [Concomitant]
     Route: 065
     Dates: start: 20060807
  13. PANTOPRAZOLE [Concomitant]
     Route: 065
     Dates: start: 20060831

REACTIONS (2)
  - Lung cancer metastatic [Fatal]
  - Cardiac arrest [Fatal]
